FAERS Safety Report 7105426-3 (Version None)
Quarter: 2010Q4

REPORT INFORMATION
  Report Type: 
  Country: None (occurrence: None)
  Receive Date: 20101110
  Receipt Date: 20101022
  Transmission Date: 20110411
  Serious: Yes (Hospitalization)
  Sender: FDA-Public Use
  Company Number: JPI-P-012689

PATIENT
  Age: 85 Year
  Sex: Female

DRUGS (2)
  1. XYREM [Suspect]
     Indication: PRODUCT USED FOR UNKNOWN INDICATION
     Dosage: 4.5 GM (2.25 GM, 2 IN 1 D), ORALL TITRATING DOSE, ORAL
     Route: 048
     Dates: start: 20041222
  2. XYREM [Suspect]
     Indication: PRODUCT USED FOR UNKNOWN INDICATION
     Dosage: 4.5 GM (2.25 GM, 2 IN 1 D), ORALL TITRATING DOSE, ORAL
     Route: 048
     Dates: start: 20060501

REACTIONS (3)
  - CELLULITIS [None]
  - HAEMATOMA [None]
  - LOCALISED INFECTION [None]
